FAERS Safety Report 9391457 (Version 1)
Quarter: 2013Q3

REPORT INFORMATION
  Report Type: Spontaneous
  Country: US (occurrence: US)
  Receive Date: 20130709
  Receipt Date: 20130709
  Transmission Date: 20140515
  Serious: Yes (Other)
  Sender: FDA-Public Use
  Company Number: US-FRI-1000045798

PATIENT
  Age: 89 Year
  Sex: Female

DRUGS (6)
  1. LINZESS [Suspect]
     Indication: IRRITABLE BOWEL SYNDROME
     Dosage: 290 MCG
     Route: 048
     Dates: start: 20130523
  2. ALIGN [Concomitant]
  3. LISINOPRIL [Concomitant]
     Indication: HYPERTENSION
  4. FISH OIL [Concomitant]
  5. COLACE [Concomitant]
     Indication: CONSTIPATION
  6. TRAMADOL [Concomitant]
     Indication: PAIN

REACTIONS (3)
  - Ulcer haemorrhage [Recovering/Resolving]
  - Diarrhoea [Unknown]
  - Gastrointestinal motility disorder [Unknown]
